FAERS Safety Report 20895760 (Version 1)
Quarter: 2022Q2

REPORT INFORMATION
  Report Type: Spontaneous
  Country: US (occurrence: US)
  Receive Date: 20220531
  Receipt Date: 20220531
  Transmission Date: 20220721
  Serious: Yes (Hospitalization, Other)
  Sender: FDA-Public Use
  Company Number: US-NOVARTISPH-NVSC2022US120797

PATIENT
  Sex: Female
  Weight: 146.03 kg

DRUGS (2)
  1. VALSARTAN [Suspect]
     Active Substance: VALSARTAN
     Indication: Product used for unknown indication
     Route: 065
  2. CARVEDILOL [Suspect]
     Active Substance: CARVEDILOL
     Indication: Product used for unknown indication
     Dosage: UNK
     Route: 065

REACTIONS (9)
  - Hypertension [Unknown]
  - Haemorrhage urinary tract [Unknown]
  - Blood potassium increased [Unknown]
  - Renal disorder [Unknown]
  - Pelvic pain [Unknown]
  - Back pain [Unknown]
  - Oedema [Unknown]
  - Asthenia [Unknown]
  - Urinary incontinence [Unknown]
